FAERS Safety Report 7869763-7 (Version None)
Quarter: 2011Q4

REPORT INFORMATION
  Report Type: 
  Country: None (occurrence: None)
  Receive Date: 20111028
  Receipt Date: 20110110
  Transmission Date: 20120403
  Serious: No
  Sender: FDA-Public Use
  Company Number: US-AMGEN-USASP2010012864

PATIENT
  Age: 44 Year
  Sex: Female
  Weight: 58.957 kg

DRUGS (1)
  1. ENBREL [Suspect]
     Indication: PSORIASIS
     Dosage: 50 MG, 2 TIMES/WK
     Dates: start: 20100406, end: 20100930

REACTIONS (3)
  - THERAPEUTIC RESPONSE DECREASED [None]
  - WEIGHT DECREASED [None]
  - SKIN DISORDER [None]
